FAERS Safety Report 6955215-5 (Version None)
Quarter: 2010Q3

REPORT INFORMATION
  Report Type: 
  Country: None (occurrence: None)
  Receive Date: 20100830
  Receipt Date: 20100823
  Transmission Date: 20110219
  Serious: Yes (Hospitalization)
  Sender: FDA-Public Use
  Company Number: US-SANOFI-AVENTIS-2010SA048134

PATIENT
  Age: 67 Year
  Sex: Male

DRUGS (5)
  1. DOCETAXEL [Suspect]
     Indication: PROSTATE CANCER
     Route: 050
     Dates: start: 20100511, end: 20100511
  2. DOCETAXEL [Suspect]
     Route: 051
     Dates: start: 20100727, end: 20100727
  3. BLINDED THERAPY [Suspect]
     Indication: PROSTATE CANCER
     Route: 048
     Dates: start: 20100503, end: 20100730
  4. PREDNISONE [Suspect]
     Indication: PROSTATE CANCER
     Route: 048
     Dates: start: 20100511
  5. DEXAMETHASONE [Suspect]
     Indication: PREMEDICATION
     Route: 048
     Dates: start: 20100511

REACTIONS (5)
  - CONFUSIONAL STATE [None]
  - CONSTIPATION [None]
  - FATIGUE [None]
  - HYPOTENSION [None]
  - URINARY RETENTION [None]
